FAERS Safety Report 4767360-3 (Version None)
Quarter: 2005Q3

REPORT INFORMATION
  Report Type: 
  Country: None (occurrence: None)
  Receive Date: 20050913
  Receipt Date: 20050819
  Transmission Date: 20060218
  Serious: Yes (Hospitalization)
  Sender: FDA-Public Use
  Company Number: PHRM2005FR02308

PATIENT
  Age: 15 Year
  Sex: Female
  Weight: 39 kg

DRUGS (11)
  1. NEORAL [Suspect]
     Indication: HEART TRANSPLANT
     Dosage: 175 MG, QD
     Route: 048
     Dates: start: 20050319, end: 20050803
  2. CORTANCYL [Suspect]
     Indication: HEART TRANSPLANT
     Dosage: 7.5 MG, QD
     Route: 048
     Dates: start: 20050319
  3. ASPEGIC 325 [Suspect]
     Dosage: 50 MG, QD
     Route: 048
     Dates: start: 20050515
  4. BACTRIM [Suspect]
     Route: 048
     Dates: start: 20050515
  5. ROVALCYTE [Suspect]
     Dosage: 900 MG, QD
     Route: 048
     Dates: start: 20050415, end: 20050804
  6. CELLCEPT [Suspect]
     Indication: HEART TRANSPLANT
     Dosage: 500 MG DAILY
     Dates: start: 20050319, end: 20050708
  7. INIPOMP [Concomitant]
  8. TAHOR [Concomitant]
  9. TRIATEC [Concomitant]
     Indication: HYPERTENSION
  10. SPECIAFOLDINE [Concomitant]
     Dates: start: 20050501, end: 20050601
  11. LEDERFOLIN [Concomitant]
     Dates: start: 20050701

REACTIONS (10)
  - CYTOMEGALOVIRUS INFECTION [None]
  - GASTROINTESTINAL HAEMORRHAGE [None]
  - HEADACHE [None]
  - HYPERTENSION [None]
  - INTRACRANIAL PRESSURE INCREASED [None]
  - LUMBAR PUNCTURE ABNORMAL [None]
  - PAPILLOEDEMA [None]
  - SCOTOMA [None]
  - VISUAL DISTURBANCE [None]
  - VOMITING [None]
